FAERS Safety Report 20190134 (Version 5)
Quarter: 2022Q2

REPORT INFORMATION
  Report Type: Report from Study
  Country: US (occurrence: US)
  Receive Date: 20211215
  Receipt Date: 20220513
  Transmission Date: 20220721
  Serious: Yes (Hospitalization)
  Sender: FDA-Public Use
  Company Number: US-TAKEDA-2021TUS076740

PATIENT
  Sex: Female
  Weight: 55 kg

DRUGS (36)
  1. PARATHYROID HORMONE [Suspect]
     Active Substance: PARATHYROID HORMONE
     Indication: Hypoparathyroidism
     Dosage: 25 MICROGRAM, QD
     Route: 065
     Dates: start: 201505, end: 20150622
  2. PARATHYROID HORMONE [Suspect]
     Active Substance: PARATHYROID HORMONE
     Indication: Hypoparathyroidism
     Dosage: 25 MICROGRAM, QD
     Route: 065
     Dates: start: 201505, end: 20150622
  3. PARATHYROID HORMONE [Suspect]
     Active Substance: PARATHYROID HORMONE
     Indication: Hypoparathyroidism
     Dosage: 25 MICROGRAM, QD
     Route: 065
     Dates: start: 201505, end: 20150622
  4. PARATHYROID HORMONE [Suspect]
     Active Substance: PARATHYROID HORMONE
     Dosage: 75 MICROGRAM, QD
     Route: 065
     Dates: start: 20150721, end: 20151201
  5. PARATHYROID HORMONE [Suspect]
     Active Substance: PARATHYROID HORMONE
     Dosage: 75 MICROGRAM, QD
     Route: 065
     Dates: start: 20150721, end: 20151201
  6. PARATHYROID HORMONE [Suspect]
     Active Substance: PARATHYROID HORMONE
     Dosage: 75 MICROGRAM, QD
     Route: 065
     Dates: start: 20150721, end: 20151201
  7. PARATHYROID HORMONE [Suspect]
     Active Substance: PARATHYROID HORMONE
     Dosage: 50 MICROGRAM, QD
     Route: 065
     Dates: start: 20150622, end: 20150721
  8. PARATHYROID HORMONE [Suspect]
     Active Substance: PARATHYROID HORMONE
     Dosage: 50 MICROGRAM, QD
     Route: 065
     Dates: start: 20150622, end: 20150721
  9. PARATHYROID HORMONE [Suspect]
     Active Substance: PARATHYROID HORMONE
     Dosage: 50 MICROGRAM, QD
     Route: 065
     Dates: start: 20150622, end: 20150721
  10. PARATHYROID HORMONE [Suspect]
     Active Substance: PARATHYROID HORMONE
     Dosage: 50 MICROGRAM, QD
     Route: 065
     Dates: start: 20151201, end: 20160620
  11. PARATHYROID HORMONE [Suspect]
     Active Substance: PARATHYROID HORMONE
     Dosage: 50 MICROGRAM, QD
     Route: 065
     Dates: start: 20151201, end: 20160620
  12. PARATHYROID HORMONE [Suspect]
     Active Substance: PARATHYROID HORMONE
     Dosage: 50 MICROGRAM, QD
     Route: 065
     Dates: start: 20151201, end: 20160620
  13. PARATHYROID HORMONE [Suspect]
     Active Substance: PARATHYROID HORMONE
     Dosage: 75 MICROGRAM, QD
     Route: 065
     Dates: start: 20160620, end: 20171211
  14. PARATHYROID HORMONE [Suspect]
     Active Substance: PARATHYROID HORMONE
     Dosage: 75 MICROGRAM, QD
     Route: 065
     Dates: start: 20160620, end: 20171211
  15. PARATHYROID HORMONE [Suspect]
     Active Substance: PARATHYROID HORMONE
     Dosage: 75 MICROGRAM, QD
     Route: 065
     Dates: start: 20160620, end: 20171211
  16. PARATHYROID HORMONE [Suspect]
     Active Substance: PARATHYROID HORMONE
     Dosage: 100 MICROGRAM, QD
     Route: 065
     Dates: start: 20171211
  17. PARATHYROID HORMONE [Suspect]
     Active Substance: PARATHYROID HORMONE
     Dosage: 100 MICROGRAM, QD
     Route: 065
     Dates: start: 20171211
  18. PARATHYROID HORMONE [Suspect]
     Active Substance: PARATHYROID HORMONE
     Dosage: 100 MICROGRAM, QD
     Route: 065
     Dates: start: 20171211
  19. NUVARING [Concomitant]
     Active Substance: ETHINYL ESTRADIOL\ETONOGESTREL
     Indication: Prophylaxis
     Dosage: UNK
     Route: 065
     Dates: start: 20141120
  20. ZINC SULFATE [Concomitant]
     Active Substance: ZINC SULFATE
     Indication: Polyglandular autoimmune syndrome type I
     Dosage: UNK
     Route: 065
     Dates: start: 20150803
  21. DIETARY SUPPLEMENT\PROBIOTICS [Concomitant]
     Active Substance: DIETARY SUPPLEMENT\PROBIOTICS
     Indication: Product used for unknown indication
     Dosage: UNK
     Route: 065
     Dates: start: 20151117
  22. HYDROCORTISONE [Concomitant]
     Active Substance: HYDROCORTISONE
     Indication: Adrenal insufficiency
     Dosage: UNK
     Route: 065
     Dates: start: 20151117
  23. FERUMOXYTOL [Concomitant]
     Active Substance: FERUMOXYTOL
     Indication: Anaemia
     Dosage: UNK
     Route: 048
     Dates: start: 20160209
  24. FLUDROCORTISONE [Concomitant]
     Active Substance: FLUDROCORTISONE
     Indication: Addison^s disease
     Dosage: UNK
     Route: 048
     Dates: start: 20160523
  25. POTASSIUM CHLORIDE [Concomitant]
     Active Substance: POTASSIUM CHLORIDE
     Indication: Product used for unknown indication
     Dosage: UNK
     Route: 048
     Dates: start: 20161215
  26. POTASSIUM CHLORIDE [Concomitant]
     Active Substance: POTASSIUM CHLORIDE
     Indication: Nephrolithiasis
  27. IMIPRAMINE [Concomitant]
     Active Substance: IMIPRAMINE
     Indication: Product used for unknown indication
     Dosage: UNK
     Route: 048
     Dates: start: 20180521
  28. LIDOCAINE [Concomitant]
     Active Substance: LIDOCAINE
     Indication: Duodenogastric reflux
     Dosage: UNK
     Route: 048
     Dates: start: 20180522
  29. PREDNISONE [Concomitant]
     Active Substance: PREDNISONE
     Indication: Scleritis
     Dosage: UNK
     Route: 048
     Dates: start: 20180425
  30. Cyanocobalamina [Concomitant]
     Indication: Supplementation therapy
     Dosage: UNK
     Route: 058
     Dates: start: 20180221
  31. TRAMADOL [Concomitant]
     Active Substance: TRAMADOL
     Indication: Product used for unknown indication
     Dosage: UNK
     Route: 048
     Dates: start: 20180715
  32. VITAMIN D3 [Concomitant]
     Active Substance: CHOLECALCIFEROL
     Indication: Supplementation therapy
     Dosage: UNK
     Route: 048
     Dates: start: 20180620
  33. ACETAMINOPHEN [Concomitant]
     Active Substance: ACETAMINOPHEN
     Indication: Fracture
     Dosage: UNK
     Route: 048
     Dates: start: 20180924
  34. HYOSCYAMINE [Concomitant]
     Active Substance: HYOSCYAMINE
     Indication: Abdominal pain
     Dosage: UNK
     Route: 048
     Dates: start: 20181219
  35. OSELTAMIVIR [Concomitant]
     Active Substance: OSELTAMIVIR
     Indication: Prophylaxis
     Dosage: UNK
     Route: 048
     Dates: start: 20190215
  36. OXYCODONE AND ACETAMINOPHEN [Concomitant]
     Active Substance: ACETAMINOPHEN\OXYCODONE HYDROCHLORIDE
     Indication: Fracture
     Dosage: UNK
     Route: 048
     Dates: start: 20180831

REACTIONS (2)
  - Abdominal pain [Recovered/Resolved]
  - Vomiting [Recovered/Resolved]

NARRATIVE: CASE EVENT DATE: 20210106
